FAERS Safety Report 12609875 (Version 1)
Quarter: 2016Q3

REPORT INFORMATION
  Report Type: Spontaneous
  Country: US (occurrence: US)
  Receive Date: 20160801
  Receipt Date: 20160801
  Transmission Date: 20161109
  Serious: No
  Sender: FDA-Public Use
  Company Number: US-TORRENT-00001236

PATIENT
  Sex: Female

DRUGS (1)
  1. MOXIFLOXACIN HYDROCHLORIDE TABLETS, 400 MG [Suspect]
     Active Substance: MOXIFLOXACIN HYDROCHLORIDE
     Indication: PRODUCT USED FOR UNKNOWN INDICATION

REACTIONS (2)
  - Dizziness [Unknown]
  - Depersonalisation/derealisation disorder [Unknown]
